FAERS Safety Report 17057429 (Version 2)
Quarter: 2020Q2

REPORT INFORMATION
  Report Type: Report from Study
  Country: CA (occurrence: CA)
  Receive Date: 20191121
  Receipt Date: 20200420
  Transmission Date: 20200713
  Serious: Yes (Other)
  Sender: FDA-Public Use
  Company Number: CA-TEVA-2019-CA-1139644

PATIENT
  Sex: Male

DRUGS (7)
  1. TYLENOL [Suspect]
     Active Substance: ACETAMINOPHEN
     Dosage: 4 GRAM DAILY; AS NEEDED
     Route: 064
  2. MYOFLEX [Suspect]
     Active Substance: TROLAMINE SALICYLATE
     Dosage: TWICE- THREE TIMES A DAY, LOCAL APPLICATION TO MOTHER
     Dates: start: 20190924
  3. COPAXONE [Suspect]
     Active Substance: GLATIRAMER ACETATE
     Route: 063
     Dates: start: 20191004, end: 2019
  4. OMEGA 3 COMPLEX (FISH OIL) [Suspect]
     Active Substance: FISH OIL
     Route: 064
  5. DILAUDID [Suspect]
     Active Substance: HYDROMORPHONE HYDROCHLORIDE
     Dosage: 4 MILLIGRAM DAILY; AS NEEDED
     Route: 064
     Dates: start: 20190920
  6. VITAMIN D [Suspect]
     Active Substance: VITAMIN D NOS
     Route: 064
  7. COPAXONE [Suspect]
     Active Substance: GLATIRAMER ACETATE
     Indication: MULTIPLE SCLEROSIS
     Route: 064
     Dates: start: 20180412, end: 2019

REACTIONS (4)
  - Tachycardia foetal [Unknown]
  - Jaundice [Unknown]
  - Foetal exposure during pregnancy [Unknown]
  - Exposure via breast milk [Unknown]

NARRATIVE: CASE EVENT DATE: 20181221
